FAERS Safety Report 20642785 (Version 1)
Quarter: 2022Q1

REPORT INFORMATION
  Report Type: Spontaneous
  Country: US (occurrence: None)
  Receive Date: 20220325
  Receipt Date: 20220325
  Transmission Date: 20220423
  Serious: Yes (Other)
  Sender: FDA-Public Use
  Company Number: None

PATIENT
  Age: 35 Year
  Sex: Male

DRUGS (1)
  1. DEXMETHYLPHENIDATE HYDROCHLORIDE [Suspect]
     Active Substance: DEXMETHYLPHENIDATE HYDROCHLORIDE
     Indication: Attention deficit hyperactivity disorder
     Dosage: 30 MG 1 CAP DAILY PO?
     Route: 048
     Dates: start: 20220118, end: 20220118

REACTIONS (4)
  - Tremor [None]
  - Dyspnoea [None]
  - Irritability [None]
  - Drug intolerance [None]

NARRATIVE: CASE EVENT DATE: 20220101
